FAERS Safety Report 7324899-4 (Version None)
Quarter: 2011Q1

REPORT INFORMATION
  Report Type: 
  Country: None (occurrence: None)
  Receive Date: 20110301
  Receipt Date: 20110223
  Transmission Date: 20110831
  Serious: Yes (Hospitalization)
  Sender: FDA-Public Use
  Company Number: US-RB-018466-10

PATIENT
  Sex: Female

DRUGS (5)
  1. SUBOXONE [Suspect]
     Dosage: DOSING DETAILS UNKNOWN
     Route: 060
     Dates: start: 20101105, end: 20101217
  2. SUBOXONE [Suspect]
     Dosage: DOSE RANGE IS 16 - 20 MG DAILY
     Route: 060
     Dates: start: 20091005, end: 20100427
  3. SUBOXONE [Suspect]
     Indication: DRUG DEPENDENCE
     Dosage: TAKES 16-20 MG
     Route: 060
     Dates: start: 20101014, end: 20101104
  4. SUBOXONE [Suspect]
     Dosage: DOSING DETAILS UNKNOWN
     Route: 060
     Dates: start: 20101218
  5. SUBOXONE [Suspect]
     Indication: DRUG DEPENDENCE
     Route: 060
     Dates: start: 20100428, end: 20101013

REACTIONS (5)
  - KIDNEY INFECTION [None]
  - STOMATITIS [None]
  - SWOLLEN TONGUE [None]
  - GLOSSODYNIA [None]
  - SEPSIS [None]
